FAERS Safety Report 19212638 (Version 1)
Quarter: 2021Q2

REPORT INFORMATION
  Report Type: Spontaneous
  Country: US (occurrence: US)
  Receive Date: 20210504
  Receipt Date: 20210504
  Transmission Date: 20210717
  Serious: Yes (Other)
  Sender: FDA-Public Use
  Company Number: US-MYLANLABS-2021M1026451

PATIENT
  Age: 40 Year
  Sex: Male

DRUGS (2)
  1. METHOTREXATE. [Concomitant]
     Active Substance: METHOTREXATE
     Indication: SERONEGATIVE ARTHRITIS
     Route: 065
  2. ADALIMUMAB [Suspect]
     Active Substance: ADALIMUMAB
     Indication: SERONEGATIVE ARTHRITIS
     Route: 065

REACTIONS (4)
  - Paradoxical drug reaction [Recovering/Resolving]
  - Stomatitis [Recovering/Resolving]
  - Pharyngeal inflammation [Recovering/Resolving]
  - Glossitis [Recovering/Resolving]
